FAERS Safety Report 8439658-9 (Version None)
Quarter: 2012Q2

REPORT INFORMATION
  Report Type: 
  Country: None (occurrence: None)
  Receive Date: 20120615
  Receipt Date: 20120605
  Transmission Date: 20120825
  Serious: Yes (Death)
  Sender: FDA-Public Use
  Company Number: US-SANOFI-AVENTIS-2012SA040200

PATIENT
  Age: 93 Year
  Sex: Female

DRUGS (7)
  1. MECLIZINE [Concomitant]
  2. PLAVIX [Suspect]
  3. CRESTOR [Concomitant]
  4. LISINOPRIL [Concomitant]
  5. ATENOLOL [Concomitant]
  6. XANAX [Concomitant]
  7. ZANTAC [Concomitant]

REACTIONS (1)
  - DEATH [None]
